FAERS Safety Report 9937232 (Version 5)
Quarter: 2014Q2

REPORT INFORMATION
  Report Type: Spontaneous
  Country: GB (occurrence: GB)
  Receive Date: 20140301
  Receipt Date: 20140408
  Transmission Date: 20141212
  Serious: Yes (Hospitalization)
  Sender: FDA-Public Use
  Company Number: PHHY2014GB021698

PATIENT
  Age: 47 Year
  Sex: Male

DRUGS (4)
  1. MIRTAZAPINE [Suspect]
     Indication: BIPOLAR DISORDER
     Dosage: UNK UKN, UNK
     Route: 048
     Dates: start: 20090601, end: 20101123
  2. MIRTAZAPINE [Suspect]
     Dosage: UNK UKN, UNK
     Route: 048
     Dates: start: 20120903
  3. MIRTAZAPINE [Suspect]
     Dosage: 30 MG, QD, 30 MG, ONCE A NIGHT (1/1 DAYS)
     Route: 048
     Dates: start: 20130419, end: 20130425
  4. MIRTAZAPINE [Suspect]
     Dosage: 30 MG, ONCE/SINGLE
     Route: 048
     Dates: start: 20130424

REACTIONS (1)
  - Priapism [Unknown]
